FAERS Safety Report 26171567 (Version 1)
Quarter: 2025Q4

REPORT INFORMATION
  Report Type: Spontaneous
  Country: US (occurrence: US)
  Receive Date: 20251217
  Receipt Date: 20251217
  Transmission Date: 20260118
  Serious: No
  Sender: GALPHARM INTERNATIONAL
  Company Number: US-PERRIGO-25US008969

PATIENT

DRUGS (1)
  1. GUAIFENESIN [Suspect]
     Active Substance: GUAIFENESIN
     Indication: Dyspnoea
     Dosage: UNKNOWN, UNKNOWN
     Route: 048

REACTIONS (2)
  - Cough [Unknown]
  - Paranasal sinus hypersecretion [Unknown]
